FAERS Safety Report 10776844 (Version 1)
Quarter: 2015Q1

REPORT INFORMATION
  Report Type: Spontaneous
  Country: US (occurrence: None)
  Receive Date: 20150206
  Receipt Date: 20150206
  Transmission Date: 20150721
  Serious: Yes (Disabling)
  Sender: FDA-Public Use
  Company Number: None

PATIENT
  Age: 71 Year
  Sex: Female
  Weight: 79.38 kg

DRUGS (9)
  1. TRADJENTA [Suspect]
     Active Substance: LINAGLIPTIN
     Indication: DIABETES MELLITUS
     Dosage: 1 P/DAY ONCE DAILY
  2. FISH OIL [Concomitant]
     Active Substance: FISH OIL
  3. LOVISTATIN [Concomitant]
  4. CENTRUM SILVER [Concomitant]
     Active Substance: VITAMINS
  5. CRANBERRY. [Concomitant]
     Active Substance: CRANBERRY
  6. GLYBRIDE [Concomitant]
  7. VITIAMIN D [Concomitant]
  8. METFORMINE [Concomitant]
     Active Substance: METFORMIN HYDROCHLORIDE
  9. EXEMESTANE. [Concomitant]
     Active Substance: EXEMESTANE

REACTIONS (3)
  - Weight increased [None]
  - Arthritis [None]
  - Trigger finger [None]
